FAERS Safety Report 9352098 (Version 2)
Quarter: 2015Q2

REPORT INFORMATION
  Report Type: Spontaneous
  Country: TR (occurrence: TR)
  Receive Date: 20130617
  Receipt Date: 20150505
  Transmission Date: 20150821
  Serious: Yes (Death, Hospitalization)
  Sender: FDA-Public Use
  Company Number: PHHY2013TR061506

PATIENT
  Age: 40 Year
  Sex: Male

DRUGS (1)
  1. OLANZAPINE. [Suspect]
     Active Substance: OLANZAPINE
     Indication: SCHIZOPHRENIA
     Dosage: 10 MG, ONCE/SINGLE
     Route: 065

REACTIONS (12)
  - Altered state of consciousness [Fatal]
  - Neuroleptic malignant syndrome [Fatal]
  - Restlessness [Fatal]
  - Agitation [Fatal]
  - Urinary incontinence [Fatal]
  - Cardio-respiratory arrest [Fatal]
  - Faecal incontinence [Fatal]
  - Dysphagia [Fatal]
  - Abnormal behaviour [Fatal]
  - Muscle rigidity [Fatal]
  - Pyrexia [Fatal]
  - Muscle spasms [Fatal]
